FAERS Safety Report 23315899 (Version 2)
Quarter: 2023Q4

REPORT INFORMATION
  Report Type: Other
  Country: US (occurrence: US)
  Receive Date: 20231219
  Receipt Date: 20231228
  Transmission Date: 20240110
  Serious: Yes (Death, Hospitalization)
  Sender: FDA-Public Use
  Company Number: US-Stemline Therapeutics, Inc.-2023ST005086

PATIENT
  Age: 79 Year
  Sex: Female

DRUGS (1)
  1. ORSERDU [Suspect]
     Active Substance: ELACESTRANT
     Indication: Product used for unknown indication
     Dosage: 86 MG ONCE A DAY
     Route: 048
     Dates: start: 20230828, end: 20231219

REACTIONS (3)
  - Death [Fatal]
  - Urinary tract infection [Not Recovered/Not Resolved]
  - Respiratory syncytial virus infection [Not Recovered/Not Resolved]

NARRATIVE: CASE EVENT DATE: 20231219
